FAERS Safety Report 4981849-3 (Version None)
Quarter: 2006Q2

REPORT INFORMATION
  Report Type: 
  Country: None (occurrence: None)
  Receive Date: 20060421
  Receipt Date: 20060421
  Transmission Date: 20061013
  Serious: Yes (Hospitalization)
  Sender: FDA-Public Use
  Company Number: None

PATIENT
  Sex: Female
  Weight: 92.3 kg

DRUGS (4)
  1. CYCLOPHOSPHAMIDE [Suspect]
     Indication: BREAST CANCER
     Dosage: 500 MG
     Dates: start: 20060331
  2. TAXOTERE [Suspect]
     Dosage: 75 MG
     Dates: start: 20060331
  3. DOXORUBICIN HCL [Suspect]
     Dosage: 50 MG
     Dates: start: 20060331
  4. GLIPIZIDE [Concomitant]

REACTIONS (5)
  - ABASIA [None]
  - FALL [None]
  - HYPOKALAEMIA [None]
  - INTERVERTEBRAL DISC DEGENERATION [None]
  - MUSCULAR WEAKNESS [None]
